FAERS Safety Report 6471268-5 (Version None)
Quarter: 2009Q4

REPORT INFORMATION
  Report Type: 
  Country: None (occurrence: None)
  Receive Date: 20091203
  Receipt Date: 20080506
  Transmission Date: 20100525
  Serious: Yes (Hospitalization)
  Sender: FDA-Public Use
  Company Number: US-ELI_LILLY_AND_COMPANY-US200802003416

PATIENT
  Sex: Male
  Weight: 84.082 kg

DRUGS (8)
  1. CYMBALTA [Suspect]
     Indication: DEPRESSION
     Dosage: 60 MG, UNK
     Dates: start: 20060101
  2. HUMULIN N [Suspect]
     Dosage: 36 U, DAILY (1/D)
     Dates: start: 20080101
  3. BYETTA [Concomitant]
     Dosage: 5 UG, 2/D
     Dates: start: 20070131, end: 20070321
  4. BYETTA [Concomitant]
     Dosage: 10 UG, 2/D
     Dates: start: 20070322
  5. METFORMIN HCL [Concomitant]
     Dosage: 1500 MG, DAILY (1/D)
  6. ACTOS [Concomitant]
     Dosage: 30 MG, DAILY (1/D)
  7. FOSINOPRIL SODIUM [Concomitant]
     Dosage: 20 MG, DAILY (1/D)
  8. LIPITOR [Concomitant]
     Dosage: 20 MG, DAILY (1/D)
     Dates: start: 20051001

REACTIONS (8)
  - ABDOMINAL PAIN [None]
  - ARTHRALGIA [None]
  - BLOOD AMYLASE INCREASED [None]
  - DIARRHOEA [None]
  - HEADACHE [None]
  - JAUNDICE [None]
  - LIPASE INCREASED [None]
  - MYALGIA [None]
